FAERS Safety Report 19750837 (Version 1)
Quarter: 2021Q3

REPORT INFORMATION
  Report Type: Spontaneous
  Country: CN (occurrence: CN)
  Receive Date: 20210826
  Receipt Date: 20210826
  Transmission Date: 20211014
  Serious: Yes (Other)
  Sender: FDA-Public Use
  Company Number: CN-PFIZER INC-202101050458

PATIENT
  Age: 69 Year
  Sex: Male
  Weight: 52 kg

DRUGS (4)
  1. BLEOMYCIN HYDROCHLORIDE [Concomitant]
     Active Substance: BLEOMYCIN HYDROCHLORIDE
     Dosage: 15 MG, 1X/DAY
     Route: 041
     Dates: start: 20210513, end: 20210513
  2. DACARBAZINE. [Suspect]
     Active Substance: DACARBAZINE
     Indication: HODGKIN^S DISEASE
     Dosage: 500 MG, 1X/DAY
     Route: 041
     Dates: start: 20210513, end: 20210513
  3. EPIRUBICIN HCL [Suspect]
     Active Substance: EPIRUBICIN HYDROCHLORIDE
     Indication: HODGKIN^S DISEASE
     Dosage: 50 MG, 1X/DAY
     Dates: start: 20210513, end: 20210513
  4. VINDESINE SULFATE [Suspect]
     Active Substance: VINDESINE SULFATE
     Indication: HODGKIN^S DISEASE
     Dosage: 3 MG, 1X/DAY
     Dates: start: 20210513, end: 20210513

REACTIONS (1)
  - Blood potassium decreased [Recovering/Resolving]

NARRATIVE: CASE EVENT DATE: 20210514
